FAERS Safety Report 5942240-6 (Version None)
Quarter: 2008Q4

REPORT INFORMATION
  Report Type: 
  Country: None (occurrence: None)
  Receive Date: 20081031
  Receipt Date: 20081016
  Transmission Date: 20090506
  Serious: Yes (Hospitalization)
  Sender: FDA-Public Use
  Company Number: 2008PL000164

PATIENT
  Age: 42 Year
  Sex: Male

DRUGS (2)
  1. IMURAN [Suspect]
     Indication: COLITIS ULCERATIVE
     Dosage: 50 MG; QD;
  2. PREDNISONE TAB [Concomitant]

REACTIONS (1)
  - ACUTE FEBRILE NEUTROPHILIC DERMATOSIS [None]
